FAERS Safety Report 5036599-4 (Version None)
Quarter: 2006Q2

REPORT INFORMATION
  Report Type: 
  Country: None (occurrence: None)
  Receive Date: 20060614
  Receipt Date: 20060501
  Transmission Date: 20061013
  Serious: Yes (Other)
  Sender: FDA-Public Use
  Company Number: BDI-008197

PATIENT
  Age: 50 Year
  Sex: Male

DRUGS (3)
  1. MULTIHANCE [Suspect]
     Indication: NEOPLASM MALIGNANT
     Dosage: 18 ML ONCE IV
     Route: 042
     Dates: start: 20060424, end: 20060424
  2. MULTIHANCE [Suspect]
     Indication: NUCLEAR MAGNETIC RESONANCE IMAGING
     Dosage: 18 ML ONCE IV
     Route: 042
     Dates: start: 20060424, end: 20060424
  3. CHEMOTHERAPY [Concomitant]

REACTIONS (1)
  - ANAPHYLACTOID REACTION [None]
